FAERS Safety Report 8958362 (Version 1)
Quarter: 2012Q4

REPORT INFORMATION
  Report Type: 
  Country: US (occurrence: US)
  Receive Date: 20121210
  Receipt Date: 20121210
  Transmission Date: 20130627
  Serious: Yes (Death)
  Sender: FDA-Public Use
  Company Number: US-GLAXOSMITHKLINE-A1003911A

PATIENT
  Age: 61 Year
  Sex: Female

DRUGS (2)
  1. PROMACTA [Suspect]
     Indication: PRODUCT USED FOR UNKNOWN INDICATION
     Dosage: 50MG Per day
     Route: 048
     Dates: start: 201207
  2. AZASAN [Concomitant]

REACTIONS (1)
  - Death [Fatal]
